FAERS Safety Report 5293525-0 (Version None)
Quarter: 2007Q2

REPORT INFORMATION
  Report Type: 
  Country: None (occurrence: None)
  Receive Date: 20070411
  Receipt Date: 20070403
  Transmission Date: 20071010
  Serious: Yes (Other)
  Sender: FDA-Public Use
  Company Number: KR-GLAXOSMITHKLINE-B0464134A

PATIENT
  Age: 45 Year
  Sex: Male

DRUGS (2)
  1. ZEFFIX [Suspect]
     Indication: DRUG USE FOR UNKNOWN INDICATION
     Route: 048
  2. HEPSERA [Suspect]
     Indication: DRUG USE FOR UNKNOWN INDICATION
     Route: 048
     Dates: start: 20070202

REACTIONS (6)
  - DRUG RESISTANCE [None]
  - FACIAL PALSY [None]
  - HYPERTONIA [None]
  - HYPOTONIA [None]
  - NECK PAIN [None]
  - VIRAL HEPATITIS CARRIER [None]
